FAERS Safety Report 8273738-6 (Version None)
Quarter: 2012Q2

REPORT INFORMATION
  Report Type: 
  Country: None (occurrence: None)
  Receive Date: 20120409
  Receipt Date: 20120409
  Transmission Date: 20120825
  Serious: No
  Sender: FDA-Public Use
  Company Number: None

PATIENT
  Age: 61 Year
  Sex: Male
  Weight: 87.7 kg

DRUGS (1)
  1. INFLIXIMAB [Suspect]
     Indication: ANKYLOSING SPONDYLITIS
     Dosage: 500 MG OTHER IV
     Route: 042
     Dates: start: 20110405

REACTIONS (10)
  - UPPER RESPIRATORY FUNGAL INFECTION [None]
  - COLD SWEAT [None]
  - CHILLS [None]
  - INFUSION RELATED REACTION [None]
  - COUGH [None]
  - PRODUCT QUALITY ISSUE [None]
  - HYPERHIDROSIS [None]
  - WHEEZING [None]
  - PYREXIA [None]
  - DIZZINESS [None]
